FAERS Safety Report 6297558-7 (Version None)
Quarter: 2009Q3

REPORT INFORMATION
  Report Type: 
  Country: None (occurrence: None)
  Receive Date: 20090805
  Receipt Date: 20090728
  Transmission Date: 20100115
  Serious: Yes (Death, Other)
  Sender: FDA-Public Use
  Company Number: IT-BAYER-200926867GPV

PATIENT
  Age: 79 Year
  Sex: Female

DRUGS (25)
  1. CIPROFLOXACIN HCL [Suspect]
     Indication: SALMONELLOSIS
     Dosage: UNIT DOSE: 250 MG
     Route: 048
     Dates: start: 20090714, end: 20090714
  2. CIPROFLOXACIN HCL [Suspect]
     Dosage: UNIT DOSE: 500 MG
     Route: 048
     Dates: start: 20090717, end: 20090718
  3. CIPROFLOXACIN HCL [Suspect]
     Dosage: UNIT DOSE: 400 MG
     Route: 042
     Dates: start: 20090715, end: 20090716
  4. ANAFRANIL [Concomitant]
     Indication: DRUG USE FOR UNKNOWN INDICATION
     Dosage: UNIT DOSE: 10 MG
     Route: 065
     Dates: end: 20090724
  5. PRAZENE [Concomitant]
     Indication: DRUG USE FOR UNKNOWN INDICATION
     Dosage: 5-5-7
     Route: 065
  6. PRAZENE [Concomitant]
     Dosage: FIRST REDUCED DOSE THEN WITHDRAWN
     Dates: start: 20090720
  7. PAROXETINE HCL [Concomitant]
     Indication: DRUG USE FOR UNKNOWN INDICATION
     Dosage: UNIT DOSE: 7 GTT
     Route: 065
  8. PAROXETINE HCL [Concomitant]
     Dosage: FIRST DOSE REDUCED THEN WITHDRAWN
     Dates: start: 20090720
  9. DEPAKOTE [Concomitant]
     Indication: DRUG USE FOR UNKNOWN INDICATION
     Dosage: 1 CP
     Route: 065
  10. DEPAKOTE [Concomitant]
     Dosage: FIRST DOSE REDUCED THEN WITHDRAWN
     Dates: start: 20090720
  11. MEDROL [Concomitant]
     Indication: DRUG USE FOR UNKNOWN INDICATION
     Route: 042
     Dates: start: 20090721, end: 20090724
  12. MEDROL [Concomitant]
     Route: 065
  13. METHOTREXATE [Concomitant]
     Indication: DRUG USE FOR UNKNOWN INDICATION
     Dosage: 1 VIAL PER WEEK
     Route: 030
     Dates: end: 20090724
  14. LOPERAMIDE HYDROCHLORIDE [Concomitant]
     Indication: DRUG USE FOR UNKNOWN INDICATION
     Route: 042
     Dates: start: 20090712, end: 20090724
  15. OMEPRAZOLE [Concomitant]
     Indication: DRUG USE FOR UNKNOWN INDICATION
     Route: 065
     Dates: end: 20090724
  16. FUROSEMIDE [Concomitant]
     Indication: DRUG USE FOR UNKNOWN INDICATION
     Route: 042
     Dates: end: 20090724
  17. DALTEPARIN SODIUM [Concomitant]
     Indication: DRUG USE FOR UNKNOWN INDICATION
     Route: 065
     Dates: end: 20090724
  18. NUTRIPERI LIPID [Concomitant]
     Indication: DRUG USE FOR UNKNOWN INDICATION
     Route: 042
     Dates: end: 20090724
  19. K-FLEBO [Concomitant]
     Indication: DRUG USE FOR UNKNOWN INDICATION
     Route: 048
     Dates: end: 20090724
  20. LOW MOLUCULAR WEIGHT HEPARIN [Concomitant]
     Indication: DRUG USE FOR UNKNOWN INDICATION
     Route: 065
  21. AMPICILLIN AND SULBACTAM [Concomitant]
     Indication: DRUG USE FOR UNKNOWN INDICATION
     Route: 042
     Dates: start: 20090712, end: 20090724
  22. CEFTRIAXONE [Concomitant]
     Indication: DRUG USE FOR UNKNOWN INDICATION
     Route: 042
     Dates: start: 20090718, end: 20090720
  23. FILGRASTIM [Concomitant]
     Indication: DRUG USE FOR UNKNOWN INDICATION
     Route: 065
     Dates: start: 20090718, end: 20090720
  24. RIFAXIMIN [Concomitant]
     Indication: DRUG USE FOR UNKNOWN INDICATION
     Route: 048
     Dates: start: 20090718, end: 20090720
  25. FLUCONAZOLE [Concomitant]
     Indication: DRUG USE FOR UNKNOWN INDICATION
     Route: 042
     Dates: start: 20090721, end: 20090724

REACTIONS (8)
  - ANAEMIA [None]
  - CONTUSION [None]
  - HAEMATOMA [None]
  - LEUKOPENIA [None]
  - MELAENA [None]
  - MOUTH HAEMORRHAGE [None]
  - SEPTIC SHOCK [None]
  - THROMBOCYTOPENIA [None]
